FAERS Safety Report 8856160 (Version 1)
Quarter: 2012Q4

REPORT INFORMATION
  Report Type: 
  Country: US (occurrence: US)
  Receive Date: 20121023
  Receipt Date: 20121023
  Transmission Date: 20130627
  Serious: No
  Sender: FDA-Public Use
  Company Number: US-AMGEN-USASP2012057432

PATIENT
  Age: 64 Year
  Sex: Male

DRUGS (8)
  1. ENBREL [Suspect]
     Indication: RHEUMATOID ARTHRITIS
     Dosage: 50 mg, qwk
     Route: 058
  2. METFORMIN [Concomitant]
     Dosage: 1000 mg, UNK
  3. DILTIAZEM [Concomitant]
     Dosage: 240 mg, UNK
  4. DIFLUNISAL [Concomitant]
     Dosage: 250 mg, UNK
  5. LOSARTAN POTASSIUM [Concomitant]
     Dosage: 100 mg, UNK
  6. SULFASALAZIN [Concomitant]
     Dosage: 500 mg, UNK
  7. VIT D [Concomitant]
     Dosage: 400 unit, UNK
  8. VIT E                              /00110501/ [Concomitant]
     Dosage: 1000 unit, UNK

REACTIONS (1)
  - Rheumatoid arthritis [Unknown]
